FAERS Safety Report 10015694 (Version 6)
Quarter: 2014Q4

REPORT INFORMATION
  Report Type: Report from Study
  Country: KR (occurrence: KR)
  Receive Date: 20140317
  Receipt Date: 20141117
  Transmission Date: 20150528
  Serious: Yes (Death)
  Sender: FDA-Public Use
  Company Number: KR-DSJP-DSJ-2014-100299AA

PATIENT

DRUGS (1)
  1. OLMESARTAN-HCTZ [Suspect]
     Active Substance: HYDROCHLOROTHIAZIDE\OLMESARTAN MEDOXOMIL
     Indication: HYPERTENSION
     Dosage: 20MG/12.5MG, QD
     Route: 048
     Dates: start: 20140113, end: 20140201

REACTIONS (4)
  - Sudden cardiac death [None]
  - Hyperkalaemia [Fatal]
  - Acute myocardial infarction [Fatal]
  - Cardioplegia [Fatal]

NARRATIVE: CASE EVENT DATE: 20140201
